FAERS Safety Report 17898358 (Version 1)
Quarter: 2020Q2

REPORT INFORMATION
  Report Type: Spontaneous
  Country: US (occurrence: US)
  Receive Date: 20200615
  Receipt Date: 20200615
  Transmission Date: 20200714
  Serious: Yes (Hospitalization, Other)
  Sender: FDA-Public Use
  Company Number: NVSC2020US166215

PATIENT
  Sex: Male

DRUGS (1)
  1. METFORMIN [Suspect]
     Active Substance: METFORMIN HYDROCHLORIDE
     Indication: FOETAL EXPOSURE DURING PREGNANCY
     Dosage: 500 MG THRICE DAILY (MATERNAL DOSE)
     Route: 064

REACTIONS (4)
  - Pneumonitis [Recovering/Resolving]
  - Hypoglycaemia neonatal [Recovering/Resolving]
  - Foetal exposure during pregnancy [Unknown]
  - Meconium aspiration syndrome [Recovering/Resolving]
